FAERS Safety Report 11254539 (Version 2)
Quarter: 2015Q4

REPORT INFORMATION
  Report Type: Spontaneous
  Country: GB (occurrence: GB)
  Receive Date: 20150709
  Receipt Date: 20151005
  Transmission Date: 20160304
  Serious: Yes (Other)
  Sender: FDA-Public Use
  Company Number: PHHY2015GB073055

PATIENT
  Age: 59 Year
  Sex: Female

DRUGS (10)
  1. BISOPROLOL [Suspect]
     Active Substance: BISOPROLOL
     Indication: TROPONIN INCREASED
     Dosage: UNK
     Route: 048
     Dates: start: 20140208, end: 201411
  2. VALSARTAN. [Concomitant]
     Active Substance: VALSARTAN
     Dosage: UNK
     Route: 065
  3. BISOPROLOL FUMARATE. [Suspect]
     Active Substance: BISOPROLOL FUMARATE
     Dosage: 2.5MG/5MLS
     Route: 048
     Dates: start: 201411, end: 20150428
  4. ATENOLOL. [Concomitant]
     Active Substance: ATENOLOL
     Dosage: UNK
     Route: 065
  5. VALSARTAN. [Concomitant]
     Active Substance: VALSARTAN
     Indication: BLOOD PRESSURE MEASUREMENT
     Route: 065
  6. RAMIPRIL. [Concomitant]
     Active Substance: RAMIPRIL
     Indication: PRODUCT USED FOR UNKNOWN INDICATION
     Route: 065
  7. BISOPROLOL FUMARATE. [Suspect]
     Active Substance: BISOPROLOL FUMARATE
     Indication: BLOOD PRESSURE MANAGEMENT
     Dosage: 2.5MG/ 5MLS
     Route: 048
     Dates: start: 201411, end: 20150428
  8. BISOPROLOL FUMARATE. [Suspect]
     Active Substance: BISOPROLOL FUMARATE
     Indication: TROPONIN INCREASED
     Dosage: 2.5 MG /5 MLS
     Route: 048
     Dates: start: 201411, end: 20150428
  9. ATENOLOL. [Concomitant]
     Active Substance: ATENOLOL
     Indication: BLOOD PRESSURE MEASUREMENT
     Route: 065
  10. RAMIPRIL. [Concomitant]
     Active Substance: RAMIPRIL
     Dosage: UNK
     Route: 065

REACTIONS (14)
  - Ear discomfort [Unknown]
  - Swollen tongue [Not Recovered/Not Resolved]
  - Postmenopausal haemorrhage [Unknown]
  - Endometrial disorder [Unknown]
  - Nasal discomfort [Unknown]
  - Abdominal discomfort [Not Recovered/Not Resolved]
  - Thrombocytopenia [Recovering/Resolving]
  - Immune thrombocytopenic purpura [Unknown]
  - Oral discomfort [Not Recovered/Not Resolved]
  - Soft tissue disorder [Unknown]
  - Thrombocytopenic purpura [Unknown]
  - Platelet count decreased [Unknown]
  - Drug ineffective [Unknown]
  - Paraesthesia oral [Not Recovered/Not Resolved]
